FAERS Safety Report 8615785-8 (Version None)
Quarter: 2012Q3

REPORT INFORMATION
  Report Type: 
  Country: None (occurrence: None)
  Receive Date: 20120823
  Receipt Date: 20120816
  Transmission Date: 20120928
  Serious: Yes (Other)
  Sender: FDA-Public Use
  Company Number: BR-PFIZER INC-2012174707

PATIENT
  Age: 70 Year
  Sex: Male

DRUGS (2)
  1. ALPHAGAN [Concomitant]
     Indication: GLAUCOMA
  2. LATANOPROST [Suspect]
     Indication: GLAUCOMA
     Dosage: 1 GTT IN EACH EYE, 1X/DAY (3UG)
     Route: 047

REACTIONS (4)
  - EYE IRRITATION [None]
  - BLINDNESS UNILATERAL [None]
  - GLAUCOMA [None]
  - DRUG INEFFECTIVE [None]
